FAERS Safety Report 4343730-2 (Version None)
Quarter: 2004Q2

REPORT INFORMATION
  Report Type: 
  Country: None (occurrence: None)
  Receive Date: 20040422
  Receipt Date: 20040408
  Transmission Date: 20050107
  Serious: Yes (Other)
  Sender: FDA-Public Use
  Company Number: DE-BRISTOL-MYERS SQUIBB COMPANY-12566196

PATIENT
  Age: 40 Year
  Sex: Male

DRUGS (2)
  1. CETUXIMAB [Suspect]
     Indication: COLORECTAL CANCER
     Route: 041
     Dates: start: 20040407, end: 20040407
  2. IRINOTECAN [Suspect]
     Indication: COLORECTAL CANCER
     Route: 042
     Dates: start: 20040407, end: 20040407

REACTIONS (6)
  - ASTHENIA [None]
  - DIARRHOEA [None]
  - HEADACHE [None]
  - HYPERHIDROSIS [None]
  - HYPOTENSION [None]
  - TACHYCARDIA [None]
